FAERS Safety Report 18043945 (Version 1)
Quarter: 2020Q3

REPORT INFORMATION
  Report Type: Spontaneous
  Country: US (occurrence: US)
  Receive Date: 20200718
  Receipt Date: 20200718
  Transmission Date: 20201103
  Serious: Yes (Hospitalization)
  Sender: FDA-Public Use
  Company Number: None

PATIENT
  Sex: Female
  Weight: 57.51 kg

DRUGS (1)
  1. OLANZAPINE. [Suspect]
     Active Substance: OLANZAPINE
     Dates: end: 20200709

REACTIONS (5)
  - Vertigo [None]
  - Unresponsive to stimuli [None]
  - Chills [None]
  - Loss of consciousness [None]
  - Gait disturbance [None]

NARRATIVE: CASE EVENT DATE: 20200709
